FAERS Safety Report 6311720-6 (Version None)
Quarter: 2009Q3

REPORT INFORMATION
  Report Type: 
  Country: None (occurrence: None)
  Receive Date: 20090817
  Receipt Date: 20090812
  Transmission Date: 20100115
  Serious: Yes (Other)
  Sender: FDA-Public Use
  Company Number: PK-ROXANE LABORATORIES, INC.-2009-RO-00813RO

PATIENT
  Age: 43 Year
  Sex: Male

DRUGS (3)
  1. ALPRAZOLAM [Suspect]
     Indication: STRESS
  2. ALPRAZOLAM [Suspect]
     Dosage: 6 MG
  3. VALIUM [Suspect]
     Route: 042

REACTIONS (2)
  - DRUG DEPENDENCE [None]
  - SOMATOFORM DISORDER [None]
